FAERS Safety Report 18187568 (Version 1)
Quarter: 2020Q3

REPORT INFORMATION
  Report Type: Spontaneous
  Country: FR (occurrence: FR)
  Receive Date: 20200824
  Receipt Date: 20200824
  Transmission Date: 20201103
  Serious: Yes (Hospitalization)
  Sender: FDA-Public Use
  Company Number: FR-PFIZER INC-2020325482

PATIENT
  Age: 52 Year
  Sex: Female
  Weight: 72 kg

DRUGS (2)
  1. ADRIBLASTINE [Suspect]
     Active Substance: DOXORUBICIN
     Indication: SARCOMA UTERUS
     Dosage: 136 MG, CYCLIC
     Route: 041
     Dates: start: 20200129, end: 20200513
  2. GEMCITABINE SANDOZ [Suspect]
     Active Substance: GEMCITABINE\GEMCITABINE HYDROCHLORIDE
     Indication: SARCOMA UTERUS
     Dosage: 1800 MG, CYCLIC
     Route: 041
     Dates: start: 20200616, end: 20200616

REACTIONS (3)
  - Cardiac failure [Recovering/Resolving]
  - Ejection fraction [Recovering/Resolving]
  - Dyspnoea exertional [Not Recovered/Not Resolved]

NARRATIVE: CASE EVENT DATE: 20200617
